FAERS Safety Report 4703731-9 (Version None)
Quarter: 2005Q2

REPORT INFORMATION
  Report Type: 
  Country: None (occurrence: None)
  Receive Date: 20050208
  Receipt Date: 20050208
  Transmission Date: 20051028
  Serious: No
  Sender: FDA-Public Use
  Company Number: None

PATIENT
  Age: 14 Year
  Sex: Male

DRUGS (1)
  1. CLONAZEPAM [Suspect]
     Indication: DYSTONIA
     Dosage: .5MG TABS ORALLY 1 DAILY
     Route: 048
     Dates: start: 19960101

REACTIONS (3)
  - MUSCLE SPASMS [None]
  - SPEECH DISORDER [None]
  - THERAPEUTIC RESPONSE UNEXPECTED WITH DRUG SUBSTITUTION [None]
